FAERS Safety Report 5431220-5 (Version None)
Quarter: 2007Q3

REPORT INFORMATION
  Report Type: 
  Country: None (occurrence: None)
  Receive Date: 20070830
  Receipt Date: 20070403
  Transmission Date: 20080115
  Serious: No
  Sender: FDA-Public Use
  Company Number: A0645801A

PATIENT
  Age: 47 Year
  Sex: Female

DRUGS (3)
  1. WELLBUTRIN XL [Suspect]
     Indication: DEPRESSION
     Dosage: 150MG PER DAY
     Route: 048
     Dates: start: 20070331
  2. SYNTHROID [Concomitant]
  3. ALLEGRA [Concomitant]

REACTIONS (4)
  - DARK CIRCLES UNDER EYES [None]
  - FATIGUE [None]
  - FEELING JITTERY [None]
  - POOR QUALITY SLEEP [None]
